FAERS Safety Report 4582223-4 (Version None)
Quarter: 2005Q2

REPORT INFORMATION
  Report Type: 
  Country: None (occurrence: None)
  Receive Date: 20050210
  Receipt Date: 20050210
  Transmission Date: 20051028
  Serious: Yes (Hospitalization)
  Sender: FDA-Public Use
  Company Number: None

PATIENT
  Sex: Female
  Weight: 90 kg

DRUGS (6)
  1. GLIADEL [Suspect]
     Indication: GLIOBLASTOMA MULTIFORME
     Dosage: 7.7 MG PER WAFER - MAX OF 8
     Dates: start: 20041115
  2. O6 BENZYLGUANINE (O6BG) [Suspect]
     Indication: GLIOBLASTOMA MULTIFORME
     Dosage: 30 MG/M2 INFUSION X 5 DAYS
     Dates: start: 20041120
  3. KEPPRA [Concomitant]
  4. LEXAPRO [Concomitant]
  5. DECADRON [Concomitant]
  6. NEURONTIN [Concomitant]

REACTIONS (3)
  - LETHARGY [None]
  - PYREXIA [None]
  - SINUSITIS [None]
